FAERS Safety Report 4569284-3 (Version None)
Quarter: 2005Q1

REPORT INFORMATION
  Report Type: 
  Country: None (occurrence: None)
  Receive Date: 20050118
  Receipt Date: 20040927
  Transmission Date: 20050727
  Serious: Yes (Other)
  Sender: FDA-Public Use
  Company Number: HQWYE455030SEP04

PATIENT
  Age: 65 Year
  Sex: Female
  Weight: 81.72 kg

DRUGS (3)
  1. PREMPRO [Suspect]
     Indication: HOT FLUSH
     Dosage: 0.625MG/2.5MG DAILY FOR 23 YEARS, ORAL
     Route: 048
  2. PREMPRO [Suspect]
     Indication: OSTEOPOROSIS
     Dosage: 0.625MG/2.5MG DAILY FOR 23 YEARS, ORAL
     Route: 048
  3. PREMPRO [Suspect]
     Dosage: 0.625 MG  /2.5MG RESUMED.

REACTIONS (3)
  - DECREASED APPETITE [None]
  - INSOMNIA [None]
  - MEMORY IMPAIRMENT [None]
